FAERS Safety Report 13667202 (Version 3)
Quarter: 2017Q3

REPORT INFORMATION
  Report Type: Spontaneous
  Country: US (occurrence: US)
  Receive Date: 20170619
  Receipt Date: 20170830
  Transmission Date: 20171127
  Serious: Yes (Other)
  Sender: FDA-Public Use
  Company Number: US-BEH-2017081293

PATIENT
  Age: 28 Year
  Sex: Female

DRUGS (2)
  1. BERINERT [Suspect]
     Active Substance: HUMAN C1-ESTERASE INHIBITOR
     Indication: HEREDITARY ANGIOEDEMA
     Dosage: 2000 IU, QOD
     Route: 042
     Dates: start: 20160321
  2. BERINERT [Suspect]
     Active Substance: HUMAN C1-ESTERASE INHIBITOR
     Indication: PROPHYLAXIS
     Dosage: 2000 IU, EVERY 2 DAYS
     Route: 042
     Dates: start: 20161107

REACTIONS (1)
  - Pharyngitis streptococcal [Unknown]

NARRATIVE: CASE EVENT DATE: 20170607
